FAERS Safety Report 9860644 (Version 1)
Quarter: 2014Q1

REPORT INFORMATION
  Report Type: Spontaneous
  Country: CA (occurrence: None)
  Receive Date: 20140130
  Receipt Date: 20140130
  Transmission Date: 20141002
  Serious: Yes (Other)
  Sender: FDA-Public Use
  Company Number: FK201400221

PATIENT
  Age: 83 Year
  Sex: Female

DRUGS (18)
  1. FUROSEMIDE (MANUFACTURER UNKNOWN) (FUROSEMIDE) (FUROSEMIDE) [Suspect]
     Indication: PRODUCT USED FOR UNKNOWN INDICATION
     Dosage: 40 MG, EVERY MORNING, UNKNOWN
  2. METOPROLOL [Suspect]
     Indication: CORONARY ARTERY DISEASE
  3. METOPROLOL [Suspect]
     Indication: CORONARY ARTERY BYPASS
  4. AMLODIPINE (AMLODIPINE) [Suspect]
     Indication: HYPERTENSION
  5. NITROGLYCERIN PATCH [Suspect]
     Indication: ANGINA PECTORIS
     Route: 062
  6. RAMIPRIL (RAMIPRIL) [Concomitant]
  7. NITROGLYCERIN  SPRAY (GLYCERYL TRINITRATE) [Concomitant]
  8. CLOPIDOGREL (CLOPIDOGREL) [Concomitant]
  9. ATROVASTATIN (ATROVASTATIN) [Concomitant]
  10. ESCITALOPRAM (ESCITALOPRAM) [Concomitant]
  11. ZOPICLONE (ZOPICLONE) [Suspect]
  12. PRAXITEN PLIVA (OXAZEPAM) (OXAZEPAM) [Concomitant]
  13. VITAMIN D (ERGOCALCIFEROL) [Concomitant]
  14. HYDROXYCHLOROQUINE (HYROXYCHLOROGUINE) [Concomitant]
  15. ACETAMINOPHEN WITH CODEINE (SOLPADEINE /00154101/) [Concomitant]
  16. ACETAMINOPHEN (PARACETAMOL) [Concomitant]
  17. PANTOPRAZOLE (PANTOPRAZOLE) [Suspect]
  18. POLETHYLENE GLYCOL EYE DROPS (MACROGOL) [Concomitant]

REACTIONS (13)
  - Fall [None]
  - Oedema peripheral [None]
  - Bradycardia [None]
  - Hypotension [None]
  - Hypokalaemia [None]
  - Back pain [None]
  - Arthralgia [None]
  - Neck pain [None]
  - Musculoskeletal pain [None]
  - Activities of daily living impaired [None]
  - Dizziness [None]
  - Balance disorder [None]
  - Sleep disorder [None]
